FAERS Safety Report 4468384-6 (Version None)
Quarter: 2004Q4

REPORT INFORMATION
  Report Type: 
  Country: None (occurrence: None)
  Receive Date: 20041007
  Receipt Date: 20040923
  Transmission Date: 20050328
  Serious: Yes (Hospitalization)
  Sender: FDA-Public Use
  Company Number: UG-GLAXOSMITHKLINE-B0346183A

PATIENT
  Age: 32 Year
  Sex: Female

DRUGS (3)
  1. COMBIVIR [Suspect]
     Indication: HIV INFECTION
     Dosage: 1TAB TWICE PER DAY
     Route: 048
  2. BLINDED STUDY DRUG [Suspect]
     Indication: HIV INFECTION
     Route: 048
  3. AMPHOTERICIN B [Concomitant]

REACTIONS (5)
  - ANAEMIA [None]
  - DIZZINESS [None]
  - MENINGITIS CRYPTOCOCCAL [None]
  - PALLOR [None]
  - PALPITATIONS [None]
